FAERS Safety Report 24236170 (Version 2)
Quarter: 2025Q1

REPORT INFORMATION
  Report Type: Spontaneous
  Country: CA (occurrence: CA)
  Receive Date: 20240822
  Receipt Date: 20250226
  Transmission Date: 20250409
  Serious: Yes (Hospitalization, Other)
  Sender: SANDOZ
  Company Number: CA-SANDOZ-SDZ2024CA074069

PATIENT
  Age: 7 Year
  Sex: Male

DRUGS (24)
  1. DEXAMETHASONE [Suspect]
     Active Substance: DEXAMETHASONE
     Indication: Acute lymphocytic leukaemia
     Route: 065
  2. DEXAMETHASONE [Suspect]
     Active Substance: DEXAMETHASONE
     Indication: B-cell type acute leukaemia
     Route: 065
  3. DEXAMETHASONE [Suspect]
     Active Substance: DEXAMETHASONE
     Indication: Haemophagocytic lymphohistiocytosis
     Route: 065
  4. DEXAMETHASONE [Suspect]
     Active Substance: DEXAMETHASONE
     Indication: Leukaemia recurrent
     Route: 065
  5. DEXAMETHASONE [Suspect]
     Active Substance: DEXAMETHASONE
     Route: 065
  6. DOCONEXENT\ICOSAPENT [Suspect]
     Active Substance: DOCONEXENT\ICOSAPENT
     Indication: Hypertriglyceridaemia
     Route: 065
  7. ICOSAPENT [Suspect]
     Active Substance: ICOSAPENT
     Indication: Hypertriglyceridaemia
     Dosage: 1.0 G, BID
     Route: 065
  8. GEMFIBROZIL [Suspect]
     Active Substance: GEMFIBROZIL
     Indication: Hypertriglyceridaemia
     Dosage: 300 MG, BID
     Route: 065
  9. GEMFIBROZIL [Suspect]
     Active Substance: GEMFIBROZIL
     Route: 065
  10. DEXTROSE [Suspect]
     Active Substance: DEXTROSE MONOHYDRATE
     Indication: Hypertriglyceridaemia
     Route: 042
  11. INSULIN NOS [Suspect]
     Active Substance: INSULIN NOS
     Indication: Hypertriglyceridaemia
     Route: 048
  12. METHOTREXATE [Suspect]
     Active Substance: METHOTREXATE
     Indication: Acute lymphocytic leukaemia
     Route: 065
  13. METHOTREXATE [Suspect]
     Active Substance: METHOTREXATE
     Indication: Leukaemia recurrent
     Route: 065
  14. METHOTREXATE [Suspect]
     Active Substance: METHOTREXATE
     Indication: B-cell type acute leukaemia
  15. MERCAPTOPURINE [Suspect]
     Active Substance: MERCAPTOPURINE
     Indication: Leukaemia recurrent
     Route: 065
  16. MERCAPTOPURINE [Suspect]
     Active Substance: MERCAPTOPURINE
     Indication: Acute lymphocytic leukaemia
  17. MERCAPTOPURINE [Suspect]
     Active Substance: MERCAPTOPURINE
     Indication: B-cell type acute leukaemia
  18. ONCASPAR [Suspect]
     Active Substance: PEGASPARGASE
     Indication: Acute lymphocytic leukaemia
     Route: 065
  19. ONCASPAR [Suspect]
     Active Substance: PEGASPARGASE
     Indication: B-cell type acute leukaemia
  20. PEG/L-ASPARAGINASE [Suspect]
     Active Substance: PEGASPARGASE
     Indication: Leukaemia recurrent
     Route: 065
  21. PEG/L-ASPARAGINASE [Suspect]
     Active Substance: PEGASPARGASE
     Indication: B-cell type acute leukaemia
  22. VINCRISTINE [Suspect]
     Active Substance: VINCRISTINE
     Indication: Leukaemia recurrent
     Route: 065
  23. VINCRISTINE [Suspect]
     Active Substance: VINCRISTINE
     Indication: Acute lymphocytic leukaemia
  24. VINCRISTINE [Suspect]
     Active Substance: VINCRISTINE
     Indication: B-cell type acute leukaemia

REACTIONS (5)
  - Hypertransaminasaemia [Recovered/Resolved]
  - Gastrointestinal disorder [Recovered/Resolved]
  - Hypertriglyceridaemia [Recovered/Resolved]
  - Increased appetite [Recovered/Resolved]
  - Drug ineffective [Recovered/Resolved]
